FAERS Safety Report 23795115 (Version 7)
Quarter: 2025Q2

REPORT INFORMATION
  Report Type: Spontaneous
  Country: US (occurrence: US)
  Receive Date: 20240429
  Receipt Date: 20250605
  Transmission Date: 20250716
  Serious: Yes (Hospitalization, Other)
  Sender: SANDOZ
  Company Number: US-SANDOZ-SDZ2024US042542

PATIENT
  Age: 26 Year
  Sex: Female
  Weight: 86 kg

DRUGS (33)
  1. ALPRAZOLAM [Suspect]
     Active Substance: ALPRAZOLAM
     Indication: Anxiety
     Dosage: 0.25 UNK, BID,PRN
     Route: 048
     Dates: start: 20240314
  2. AMITRIPTYLINE [Suspect]
     Active Substance: AMITRIPTYLINE
     Indication: Anxiety
     Route: 065
     Dates: start: 20240307
  3. IMURAN [Suspect]
     Active Substance: AZATHIOPRINE
     Indication: Immunosuppression
     Route: 048
     Dates: start: 20230816
  4. MYCOPHENOLATE MOFETIL [Suspect]
     Active Substance: MYCOPHENOLATE MOFETIL
     Dosage: 180 MG, BID
     Route: 048
     Dates: start: 20230629, end: 20230816
  5. MYCOPHENOLATE MOFETIL [Suspect]
     Active Substance: MYCOPHENOLATE MOFETIL
     Dosage: 180 MG, BID (TITRATED UP TO 360 MG TWICE A DAY AFTER 1 WEEK)
     Route: 048
     Dates: start: 20230629, end: 20230815
  6. MYCOPHENOLATE MOFETIL [Suspect]
     Active Substance: MYCOPHENOLATE MOFETIL
     Indication: Renal transplant
     Route: 065
     Dates: end: 20230814
  7. PREDNISONE [Suspect]
     Active Substance: PREDNISONE
     Indication: Immunosuppressant drug therapy
     Dosage: 5 MG, QD
     Route: 048
     Dates: start: 20210425
  8. PROGRAF [Suspect]
     Active Substance: TACROLIMUS
     Indication: Immunosuppressant drug therapy
     Route: 065
     Dates: start: 20210425
  9. ROCALTROL [Suspect]
     Active Substance: CALCITRIOL
     Indication: Mineral supplementation
     Route: 065
     Dates: start: 2021
  10. VITAMIN D [Suspect]
     Active Substance: VITAMIN D NOS
     Indication: Vitamin D deficiency
     Dosage: 2000 IU, QD IU
     Route: 065
  11. ALPRAZOLAM [Concomitant]
     Active Substance: ALPRAZOLAM
     Indication: Anxiety
     Dosage: UNK UNK, BID (0.25 BID)
     Route: 048
     Dates: start: 20240314
  12. AMITRIPTYLINE [Concomitant]
     Active Substance: AMITRIPTYLINE
     Indication: Anxiety
     Route: 065
     Dates: start: 20240307
  13. AMLODIPINE [Concomitant]
     Active Substance: AMLODIPINE BESYLATE
     Dosage: 10 MG, QD
     Route: 065
     Dates: start: 20230413
  14. AMLODIPINE [Concomitant]
     Active Substance: AMLODIPINE BESYLATE
     Indication: Hypertension
     Dosage: 10 UG, QD (IF BP 140/90)UG
     Route: 065
     Dates: start: 20240405
  15. ATARAX [Concomitant]
     Active Substance: HYDROXYZINE HYDROCHLORIDE
     Indication: Anxiety
     Dosage: 25 MG, QD (PRN)
     Route: 065
     Dates: start: 20230725
  16. AZATHIOPRINE [Concomitant]
     Active Substance: AZATHIOPRINE
     Indication: Immunosuppression
     Route: 065
     Dates: start: 20230816
  17. CALCITRIOL [Concomitant]
     Active Substance: CALCITRIOL
     Indication: Renal transplant
     Dosage: 0.5 UG, QD ON M, W, F UG
     Route: 065
     Dates: start: 2019
  18. FLUOXETINE [Concomitant]
     Active Substance: FLUOXETINE HYDROCHLORIDE
     Indication: Anxiety
     Dosage: 20 MG, QD
     Route: 065
     Dates: start: 2022
  19. IMURAN [Concomitant]
     Active Substance: AZATHIOPRINE
     Indication: Renal transplant
     Dosage: 50 MG, 2 DOSAGE FORM, QD
     Route: 065
     Dates: start: 20230815
  20. KEFLEX [Concomitant]
     Active Substance: CEPHALEXIN
     Indication: Urinary tract infection
     Dosage: 500 MG, QD
     Route: 065
     Dates: start: 20231003
  21. LEXAPRO [Concomitant]
     Active Substance: ESCITALOPRAM OXALATE
     Indication: Anxiety
     Dosage: 10 MG, QD
     Route: 065
     Dates: start: 20230606, end: 20230725
  22. LEXAPRO [Concomitant]
     Active Substance: ESCITALOPRAM OXALATE
     Indication: Depression
  23. MAGNESIUM [Concomitant]
     Active Substance: MAGNESIUM
     Indication: Hypomagnesaemia
     Dosage: UNK, QD (25TABLETS)
     Route: 065
     Dates: start: 202404
  24. MAGNESIUM [Concomitant]
     Active Substance: MAGNESIUM
     Indication: Hypomagnesaemia
     Dosage: 2.5 DOSAGE FORM, QD
     Route: 065
     Dates: start: 202404
  25. PROGRAF [Concomitant]
     Active Substance: TACROLIMUS
     Indication: Immune disorder prophylaxis
     Dosage: 1 MG, QD
     Route: 065
     Dates: start: 20210425
  26. PROGRAF [Concomitant]
     Active Substance: TACROLIMUS
     Indication: Renal transplant
     Dosage: UNK, BID (4 MG IN AM AND 5 MG IN PM)
     Route: 065
     Dates: start: 202104
  27. PROZAC [Concomitant]
     Active Substance: FLUOXETINE HYDROCHLORIDE
     Indication: Anxiety
     Dosage: 20 MG, QD
     Route: 065
     Dates: start: 20230725
  28. ROCALTROL [Concomitant]
     Active Substance: CALCITRIOL
     Indication: Renal transplant
     Dosage: 0.5 UG, Q3WUG
     Route: 065
     Dates: start: 2021
  29. ROCALTROL [Concomitant]
     Active Substance: CALCITRIOL
     Indication: Mineral supplementation
     Route: 065
     Dates: start: 20230425
  30. TACROLIMUS [Concomitant]
     Active Substance: TACROLIMUS
     Indication: Renal transplant
     Dosage: 1 MG, QD
     Route: 065
     Dates: start: 20210425
  31. TACROLIMUS [Concomitant]
     Active Substance: TACROLIMUS
     Indication: Immune disorder prophylaxis
  32. WELLBUTRIN [Concomitant]
     Active Substance: BUPROPION HYDROCHLORIDE
     Indication: Anxiety
     Dosage: 150 MG, QD
     Route: 065
     Dates: start: 20230629, end: 20230725
  33. WELLBUTRIN [Concomitant]
     Active Substance: BUPROPION HYDROCHLORIDE
     Dosage: 150 MG, QD
     Route: 065
     Dates: start: 2021

REACTIONS (7)
  - Hypertension [Unknown]
  - Traumatic delivery [Unknown]
  - Superimposed pre-eclampsia [Unknown]
  - Clavicle fracture [Unknown]
  - Delivery [Unknown]
  - Injury [Unknown]
  - Maternal exposure during pregnancy [Unknown]

NARRATIVE: CASE EVENT DATE: 20240402
